FAERS Safety Report 5636599-7 (Version None)
Quarter: 2008Q1

REPORT INFORMATION
  Report Type: 
  Country: None (occurrence: None)
  Receive Date: 20080219
  Receipt Date: 20080208
  Transmission Date: 20080703
  Serious: Yes (Life-Threatening, Hospitalization, Other)
  Sender: FDA-Public Use
  Company Number: URSO-2007-203

PATIENT
  Age: 83 Year
  Sex: Male

DRUGS (1)
  1. URSO TABLETS (URSODEOXYCHOLIC ACID) [Suspect]
     Dosage: ONE DOSE-70-100 TABLETS (48-69MG/KG, ESTIMATED) ORAL
     Route: 048

REACTIONS (4)
  - INTENTIONAL OVERDOSE [None]
  - LOSS OF CONSCIOUSNESS [None]
  - SUICIDE ATTEMPT [None]
  - VOMITING [None]
